FAERS Safety Report 25767307 (Version 1)
Quarter: 2025Q3

REPORT INFORMATION
  Report Type: Spontaneous
  Country: US (occurrence: US)
  Receive Date: 20250905
  Receipt Date: 20250905
  Transmission Date: 20251020
  Serious: No
  Sender: SANOFI AVENTIS
  Company Number: US-SA-2025SA265266

PATIENT
  Age: 60 Year
  Sex: Female

DRUGS (1)
  1. DUPIXENT [Suspect]
     Active Substance: DUPILUMAB
     Indication: Nasal polyps
     Dosage: 300 MG, QOW
     Route: 058
     Dates: start: 202412, end: 202505

REACTIONS (8)
  - Nasal polyps [Unknown]
  - Condition aggravated [Unknown]
  - Rebound effect [Unknown]
  - Ageusia [Unknown]
  - Anosmia [Unknown]
  - Sinus congestion [Unknown]
  - Throat irritation [Unknown]
  - Headache [Unknown]

NARRATIVE: CASE EVENT DATE: 20250101
